FAERS Safety Report 25419183 (Version 2)
Quarter: 2025Q2

REPORT INFORMATION
  Report Type: Spontaneous
  Country: GB (occurrence: GB)
  Receive Date: 20250610
  Receipt Date: 20250624
  Transmission Date: 20250717
  Serious: Yes (Other)
  Sender: INSUD PHARMA
  Company Number: None

PATIENT
  Sex: Female

DRUGS (1)
  1. TESTOSTERONE [Suspect]
     Active Substance: TESTOSTERONE
     Indication: Adverse drug reaction
     Route: 065

REACTIONS (1)
  - Pelvic pain [Not Recovered/Not Resolved]
